FAERS Safety Report 19359783 (Version 1)
Quarter: 2021Q2

REPORT INFORMATION
  Report Type: Spontaneous
  Country: CN (occurrence: CN)
  Receive Date: 20210601
  Receipt Date: 20210601
  Transmission Date: 20210717
  Serious: Yes (Hospitalization)
  Sender: FDA-Public Use
  Company Number: NVSC2021CN121206

PATIENT
  Age: 8 Year
  Sex: Male
  Weight: 28.5 kg

DRUGS (8)
  1. TOPOTECAN HYDROCHLORIDE. [Suspect]
     Active Substance: TOPOTECAN HYDROCHLORIDE
     Indication: ADVERSE DRUG REACTION
     Dosage: 0.79 MG, QD
     Route: 041
     Dates: start: 20210515, end: 20210519
  2. ONDANSETRON HYDROCHLORIDE. [Concomitant]
     Active Substance: ONDANSETRON HYDROCHLORIDE
     Indication: NAUSEA
     Dosage: 5.3 MG, TID
     Route: 042
     Dates: start: 20210515, end: 20210519
  3. SODIUM CHLORIDE. [Concomitant]
     Active Substance: SODIUM CHLORIDE
     Dosage: 25 ML, TID
     Route: 042
     Dates: start: 20210515, end: 20210519
  4. ONDANSETRON HYDROCHLORIDE. [Concomitant]
     Active Substance: ONDANSETRON HYDROCHLORIDE
     Indication: VOMITING
  5. CYCLOPHOSPHAMIDE. [Suspect]
     Active Substance: CYCLOPHOSPHAMIDE
     Indication: ADVERSE DRUG REACTION
     Dosage: 262.5 MG, QD
     Route: 041
     Dates: start: 20210515, end: 20210519
  6. SODIUM CHLORIDE. [Concomitant]
     Active Substance: SODIUM CHLORIDE
     Indication: MEDICATION DILUTION
     Dosage: 63 ML, QD
     Route: 042
     Dates: start: 20210515, end: 20210519
  7. SODIUM CHLORIDE. [Concomitant]
     Active Substance: SODIUM CHLORIDE
     Dosage: 32 ML, QD
     Route: 042
     Dates: start: 20210515, end: 20210519
  8. MESNA. [Concomitant]
     Active Substance: MESNA
     Indication: CYSTITIS HAEMORRHAGIC
     Dosage: 158 MG, BID
     Route: 042
     Dates: start: 20210515, end: 20210519

REACTIONS (1)
  - Full blood count decreased [Recovering/Resolving]

NARRATIVE: CASE EVENT DATE: 20210517
